FAERS Safety Report 4377459-1 (Version None)
Quarter: 2004Q2

REPORT INFORMATION
  Report Type: 
  Country: None (occurrence: None)
  Receive Date: 20040615
  Receipt Date: 20040511
  Transmission Date: 20050107
  Serious: Yes (Other)
  Sender: FDA-Public Use
  Company Number: PHBS2004JP06449

PATIENT
  Age: 56 Year
  Sex: Female

DRUGS (5)
  1. DIOVAN [Suspect]
     Dosage: 80 MG/DAY
     Route: 048
     Dates: start: 20040201, end: 20040524
  2. MEPTIN [Suspect]
     Dosage: 100 UG/DAY
     Route: 048
     Dates: start: 20040201, end: 20040510
  3. THEO-DUR [Suspect]
     Dosage: 400 MG/DAY
     Route: 048
     Dates: start: 20040201, end: 20040514
  4. FERROMIA [Suspect]
     Dosage: 100 MG/DAY
     Route: 048
     Dates: start: 20040201, end: 20040514
  5. NORVASC [Suspect]
     Dosage: 5 MG/DAY
     Route: 048
     Dates: start: 20040201, end: 20040524

REACTIONS (5)
  - DRUG HYPERSENSITIVITY [None]
  - DYSPNOEA EXERTIONAL [None]
  - EOSINOPHIL COUNT INCREASED [None]
  - EOSINOPHILIA [None]
  - EOSINOPHILIC PNEUMONIA [None]
